FAERS Safety Report 16220049 (Version 1)
Quarter: 2019Q2

REPORT INFORMATION
  Report Type: Spontaneous
  Country: US (occurrence: US)
  Receive Date: 20190420
  Receipt Date: 20190420
  Transmission Date: 20190711
  Serious: No
  Sender: FDA-Public Use
  Company Number: US-009507513-1904USA003753

PATIENT
  Age: 8 Year

DRUGS (1)
  1. ASMANEX HFA [Suspect]
     Active Substance: MOMETASONE FUROATE
     Route: 055

REACTIONS (3)
  - No adverse event [Unknown]
  - Product use issue [Unknown]
  - Product administered to patient of inappropriate age [Unknown]
